FAERS Safety Report 5961016-7 (Version None)
Quarter: 2008Q4

REPORT INFORMATION
  Report Type: 
  Country: None (occurrence: None)
  Receive Date: 20081121
  Receipt Date: 20080422
  Transmission Date: 20090506
  Serious: No
  Sender: FDA-Public Use
  Company Number: A0724120A

PATIENT
  Age: 70 Year
  Sex: Female

DRUGS (2)
  1. LANOXIN [Suspect]
     Route: 048
     Dates: start: 19980101, end: 19980101
  2. ARMOUR THYROID [Concomitant]

REACTIONS (1)
  - MALAISE [None]
